FAERS Safety Report 5833138-2 (Version None)
Quarter: 2008Q3

REPORT INFORMATION
  Report Type: 
  Country: None (occurrence: None)
  Receive Date: 20080731
  Receipt Date: 20080716
  Transmission Date: 20090109
  Serious: Yes (Hospitalization)
  Sender: FDA-Public Use
  Company Number: 2008AL008433

PATIENT
  Age: 67 Year
  Weight: 92.0802 kg

DRUGS (3)
  1. DIGOXIN [Suspect]
     Indication: CARDIAC DISORDER
     Dosage: 0.125MG DAILY PO
     Route: 048
     Dates: start: 20080401
  2. AMIODARNE [Concomitant]
  3. LASIX [Concomitant]

REACTIONS (3)
  - DEVICE MALFUNCTION [None]
  - DIZZINESS [None]
  - SYNCOPE [None]
